FAERS Safety Report 8427601-8 (Version None)
Quarter: 2012Q2

REPORT INFORMATION
  Report Type: 
  Country: None (occurrence: None)
  Receive Date: 20120323
  Receipt Date: 20111205
  Transmission Date: 20120825
  Serious: Yes (Other)
  Sender: FDA-Public Use
  Company Number: 163-21880-11120687

PATIENT
  Age: 68 Year
  Sex: Male

DRUGS (9)
  1. HYDRALAZINE HCL [Concomitant]
  2. REVLIMID [Suspect]
     Indication: MULTIPLE MYELOMA
     Dosage: 15 MG, DAILY X 21 DAYS, PO
     Route: 048
     Dates: start: 20111110, end: 20110101
  3. TORSEMIDE [Concomitant]
  4. GEMFIBROZIL [Concomitant]
  5. PANTOPRAZOLE SODIUM [Concomitant]
  6. SERTRALINE HCL (SERTRALINE HYDROCHLORIDE) [Concomitant]
  7. OXYCODONE HCL [Concomitant]
  8. TRAZODONE HCL [Concomitant]
  9. GLIPIZIDE [Concomitant]

REACTIONS (2)
  - RENAL FAILURE [None]
  - ANAEMIA [None]
